FAERS Safety Report 12599392 (Version 1)
Quarter: 2016Q3

REPORT INFORMATION
  Report Type: Spontaneous
  Country: LT (occurrence: LT)
  Receive Date: 20160727
  Receipt Date: 20160727
  Transmission Date: 20161109
  Serious: Yes (Hospitalization)
  Sender: FDA-Public Use
  Company Number: LT-JNJFOC-20160720632

PATIENT
  Age: 80 Year
  Sex: Female
  Weight: 80 kg

DRUGS (1)
  1. XARELTO [Suspect]
     Active Substance: RIVAROXABAN
     Indication: PRODUCT USED FOR UNKNOWN INDICATION
     Route: 048
     Dates: start: 20160501, end: 20160715

REACTIONS (5)
  - Nausea [Unknown]
  - Haemoglobin decreased [Unknown]
  - Arrhythmia [Unknown]
  - Gait disturbance [Unknown]
  - Vomiting [Unknown]

NARRATIVE: CASE EVENT DATE: 20160601
